FAERS Safety Report 6793301-3 (Version None)
Quarter: 2010Q2

REPORT INFORMATION
  Report Type: 
  Country: None (occurrence: None)
  Receive Date: 20100624
  Receipt Date: 20091214
  Transmission Date: 20101027
  Serious: Yes (Other)
  Sender: FDA-Public Use
  Company Number: US-MYLANLABS-2009S1019438

PATIENT
  Age: 62 Year
  Sex: Female
  Weight: 62.14 kg

DRUGS (14)
  1. CLOZAPINE [Suspect]
     Indication: SCHIZOPHRENIA, PARANOID TYPE
     Dates: start: 20091027, end: 20091001
  2. CLOZAPINE [Suspect]
     Indication: PSYCHOTIC DISORDER
     Dates: start: 20091027, end: 20091001
  3. CLOZAPINE [Suspect]
     Dates: start: 20091001
  4. CLOZAPINE [Suspect]
     Dates: start: 20091001
  5. CLOZAPINE [Suspect]
     Dates: end: 20091101
  6. CLOZAPINE [Suspect]
     Dates: end: 20091101
  7. CLOZAPINE [Suspect]
     Dates: start: 20091101
  8. CLOZAPINE [Suspect]
     Dates: start: 20091101
  9. CLOZAPINE [Suspect]
     Dates: end: 20091110
  10. CLOZAPINE [Suspect]
     Dates: end: 20091110
  11. DEPAKOTE ER [Concomitant]
     Dates: start: 20080905
  12. COLACE [Concomitant]
  13. ZYPREXA [Concomitant]
     Dates: start: 20090820
  14. QUETIAPINE [Concomitant]
     Dates: start: 20090307

REACTIONS (1)
  - GRANULOCYTOPENIA [None]
